FAERS Safety Report 7773347-9 (Version None)
Quarter: 2011Q3

REPORT INFORMATION
  Report Type: 
  Country: None (occurrence: None)
  Receive Date: 20110922
  Receipt Date: 20110919
  Transmission Date: 20111222
  Serious: Yes (Hospitalization)
  Sender: FDA-Public Use
  Company Number: BE-ABBOTT-11P-013-0841478-00

PATIENT
  Sex: Female
  Weight: 61 kg

DRUGS (2)
  1. MEDROL [Concomitant]
     Indication: PRODUCT USED FOR UNKNOWN INDICATION
     Dosage: 1 TABLET DAILY
     Dates: start: 20110822
  2. HUMIRA [Suspect]
     Indication: ANKYLOSING SPONDYLITIS
     Dates: start: 20070912, end: 20110614

REACTIONS (8)
  - PAPILLITIS [None]
  - WEIGHT DECREASED [None]
  - ANAEMIA [None]
  - TOXICITY TO VARIOUS AGENTS [None]
  - PNEUMONIA [None]
  - INFLAMMATION [None]
  - APLASIA PURE RED CELL [None]
  - SYSTEMIC LUPUS ERYTHEMATOSUS [None]
